FAERS Safety Report 7236152-8 (Version None)
Quarter: 2010Q4

REPORT INFORMATION
  Report Type: 
  Country: None (occurrence: None)
  Receive Date: 20101130
  Receipt Date: 20100211
  Transmission Date: 20110411
  Serious: Yes (Other)
  Sender: FDA-Public Use
  Company Number: 2010BH002977

PATIENT
  Age: 11 Month
  Sex: Male
  Weight: 13 kg

DRUGS (3)
  1. ADVATE [Suspect]
     Indication: HAEMOPHILIA
     Dosage: 1300 IU;EVERY WEEK;IV ; AS NEEDED;IV ; AS NEEDED
     Route: 042
     Dates: start: 20100120, end: 20100120
  2. ADVATE [Suspect]
     Indication: HAEMOPHILIA
     Dosage: 1300 IU;EVERY WEEK;IV ; AS NEEDED;IV ; AS NEEDED
     Route: 042
     Dates: start: 20100129, end: 20100201
  3. ADVATE [Suspect]

REACTIONS (1)
  - FACTOR VIII INHIBITION [None]
